FAERS Safety Report 6070400-5 (Version None)
Quarter: 2009Q1

REPORT INFORMATION
  Report Type: 
  Country: None (occurrence: None)
  Receive Date: 20090204
  Receipt Date: 20090122
  Transmission Date: 20090719
  Serious: Yes (Hospitalization)
  Sender: FDA-Public Use
  Company Number: 8042168

PATIENT
  Age: 30 Year
  Sex: Male

DRUGS (1)
  1. CIMZIA [Suspect]
     Indication: CROHN'S DISEASE
     Dosage: 200 MG /M SC
     Route: 058
     Dates: start: 20090121, end: 20090121

REACTIONS (11)
  - DYSPNOEA [None]
  - ERYTHEMA [None]
  - LEUKOCYTOSIS [None]
  - MYALGIA [None]
  - NECK PAIN [None]
  - ODYNOPHAGIA [None]
  - PAIN IN EXTREMITY [None]
  - PYREXIA [None]
  - SHIFT TO THE LEFT [None]
  - TACHYCARDIA [None]
  - VOMITING [None]
